FAERS Safety Report 16699669 (Version 1)
Quarter: 2019Q3

REPORT INFORMATION
  Report Type: Report from Study
  Country: US (occurrence: US)
  Receive Date: 20190813
  Receipt Date: 20190813
  Transmission Date: 20191004
  Serious: Yes (Death, Hospitalization)
  Sender: FDA-Public Use
  Company Number: US-TEVA-2019-US-1090527

PATIENT
  Age: 33 Year
  Sex: Male

DRUGS (12)
  1. EPINEPHRINE. [Suspect]
     Active Substance: EPINEPHRINE
     Indication: RESUSCITATION
     Dosage: 5 DOSES
     Route: 065
  2. TIMOTHY GRASS POLLEN [Suspect]
     Active Substance: PHLEUM PRATENSE POLLEN
     Indication: ASTHMA
     Dosage: GRASS POLLEN (EQUAL PARTS OF GRASS POLLEN ALLERGY IMMUNOTHERAPY [JOHNSON GRASS POLLEN, BERMUDA GR...
     Route: 058
  3. WEED POLLEN [Suspect]
     Active Substance: ALLERGENIC EXTRACT- WEEDS
     Indication: ASTHMA
     Route: 058
  4. DOG EPITHELIA [Suspect]
     Active Substance: CANIS LUPUS FAMILIARIS SKIN
     Indication: ASTHMA
     Route: 058
  5. COCKROACH ALLERGEN [Suspect]
     Active Substance: ALLERGENIC EXTRACT- COCKROACH PERIPLANETA AMERICANA
     Indication: ASTHMA
     Route: 058
  6. TREE POLLEN [Suspect]
     Active Substance: HOMEOPATHICS
     Indication: ASTHMA
     Route: 058
  7. DIPHENHYDRAMINE. [Suspect]
     Active Substance: DIPHENHYDRAMINE
     Indication: RESUSCITATION
     Route: 065
  8. JOHNSON GRASS POLLEN [Suspect]
     Active Substance: SORGHUM HALEPENSE POLLEN
     Indication: ASTHMA
     Dosage: GRASS POLLEN (EQUAL PARTS OF GRASS POLLEN ALLERGY IMMUNOTHERAPY [JOHNSON GRASS POLLEN, BERMUDA GR...
     Route: 058
  9. STANDARDIZED BERMUDA GRASS POLLEN [Suspect]
     Active Substance: CYNODON DACTYLON POLLEN
     Indication: ASTHMA
     Dosage: GRASS POLLEN (EQUAL PARTS OF GRASS POLLEN ALLERGY IMMUNOTHERAPY [JOHNSON GRASS POLLEN, BERMUDA GR...
     Route: 058
  10. ADVAIR HFA [Concomitant]
     Active Substance: FLUTICASONE PROPIONATE\SALMETEROL XINAFOATE
     Indication: ASTHMA
     Dosage: 500/50 MCG
     Route: 065
  11. CAT EPITHELIA [Suspect]
     Active Substance: FELIS CATUS SKIN
     Indication: ASTHMA
     Dosage: 0.6ML IN A 5ML VIAL
     Route: 058
  12. STANDARDISED HOUSE DUST MITE [Suspect]
     Active Substance: DERMATOPHAGOIDES FARINAE\DERMATOPHAGOIDES PTERONYSSINUS
     Indication: ASTHMA
     Dosage: 0.7ML IN A 5ML VIAL
     Route: 058

REACTIONS (3)
  - Cardiopulmonary failure [Fatal]
  - Coma [Fatal]
  - Drug ineffective [Fatal]

NARRATIVE: CASE EVENT DATE: 2015
